FAERS Safety Report 8761383 (Version 1)
Quarter: 2012Q4

REPORT INFORMATION
  Report Type: 
  Country: IT (occurrence: IT)
  Receive Date: 20120830
  Receipt Date: 20120830
  Transmission Date: 20130627
  Serious: Yes (Hospitalization)
  Sender: FDA-Public Use
  Company Number: IT-PFIZER INC-2012208563

PATIENT
  Age: 61 Year
  Sex: Male

DRUGS (1)
  1. OXALIPLATIN [Suspect]
     Indication: GASTRIC CANCER
     Dosage: 85 mg/m2, every 2 weeks

REACTIONS (6)
  - Pulmonary toxicity [Recovered/Resolved]
  - Dyspnoea [Recovered/Resolved]
  - Pyrexia [Unknown]
  - Cough [Recovered/Resolved]
  - Rales [Recovered/Resolved]
  - Diarrhoea [Unknown]
